FAERS Safety Report 24453093 (Version 1)
Quarter: 2024Q4

REPORT INFORMATION
  Report Type: Spontaneous
  Country: US (occurrence: US)
  Receive Date: 20241017
  Receipt Date: 20241017
  Transmission Date: 20250115
  Serious: No
  Sender: SUNOVION
  Company Number: US-SMPA-202404-URV-000569AA

PATIENT
  Sex: Female
  Weight: 99.773 kg

DRUGS (11)
  1. GEMTESA [Suspect]
     Active Substance: VIBEGRON
     Indication: Hypertonic bladder
     Dosage: 75 MG, QD, IN THE MORNING
     Route: 048
  2. BUSPIRONE                          /00803202/ [Concomitant]
     Indication: Product used for unknown indication
     Dosage: 10 MG, BID
     Route: 065
  3. BUPROPION [Concomitant]
     Active Substance: BUPROPION
     Indication: Product used for unknown indication
     Dosage: 450 MG, QD
     Route: 065
  4. AMLODIPINE BESYLATE [Concomitant]
     Active Substance: AMLODIPINE BESYLATE
     Indication: Product used for unknown indication
     Dosage: 5 MG, BID
     Route: 065
  5. FUROSEMIDE                         /00032602/ [Concomitant]
     Indication: Product used for unknown indication
     Dosage: 20 MG, QD
     Route: 065
  6. THIMEROSAL [Concomitant]
     Active Substance: THIMEROSAL
     Indication: Product used for unknown indication
     Dosage: UNK, QD
     Route: 065
  7. LOSARTAN [Concomitant]
     Active Substance: LOSARTAN
     Indication: Product used for unknown indication
     Dosage: UNK, QD
     Route: 065
  8. POTASSIUM                          /00031402/ [Concomitant]
     Indication: Product used for unknown indication
     Dosage: 10 MG, QD, IN EVENING
     Route: 065
  9. ATORVASTATIN [Concomitant]
     Active Substance: ATORVASTATIN
     Indication: Product used for unknown indication
     Dosage: UNK, QD, AT NIGHT TIME
     Route: 065
  10. FLUOXETINE [Concomitant]
     Active Substance: FLUOXETINE HYDROCHLORIDE
     Indication: Product used for unknown indication
     Dosage: 80 MG, QD
     Route: 065
  11. PRAMIPEXOLE                        /01356402/ [Concomitant]
     Indication: Product used for unknown indication
     Dosage: UNK, TID
     Route: 065

REACTIONS (1)
  - Peripheral swelling [Recovering/Resolving]
